FAERS Safety Report 9989731 (Version 1)
Quarter: 2014Q1

REPORT INFORMATION
  Report Type: Spontaneous
  Country: US (occurrence: None)
  Receive Date: 20140123
  Receipt Date: 20140123
  Transmission Date: 20141002
  Serious: Yes (Hospitalization)
  Sender: FDA-Public Use
  Company Number: UTC-038349

PATIENT
  Age: 68 Year
  Sex: Female
  Weight: 86.36 kg

DRUGS (1)
  1. REMODULIN (1 MILLIGRAM/ MILLILITERS, INJECTION FOR INFUSION) (TREPROSTINIL SODIUM) [Suspect]
     Indication: PULMONARY ARTERIAL HYPERTENSION
     Dosage: 1 IN 1 MIN
     Route: 058
     Dates: start: 20130207

REACTIONS (1)
  - Device related infection [None]
